FAERS Safety Report 4974800-3 (Version None)
Quarter: 2006Q2

REPORT INFORMATION
  Report Type: 
  Country: None (occurrence: None)
  Receive Date: 20060417
  Receipt Date: 20051221
  Transmission Date: 20061013
  Serious: Yes (Hospitalization, Other)
  Sender: FDA-Public Use
  Company Number: US-MERCK-0512USA03426

PATIENT
  Age: 58 Year
  Sex: Male
  Weight: 139 kg

DRUGS (5)
  1. VIOXX [Suspect]
     Route: 048
     Dates: start: 20030301, end: 20031224
  2. TOPROL-XL [Concomitant]
     Route: 065
  3. LASIX [Concomitant]
     Indication: OEDEMA PERIPHERAL
     Route: 065
  4. LASIX [Concomitant]
     Indication: HYPERTENSION
     Route: 065
  5. POTASSIUM (UNSPECIFIED) [Concomitant]
     Route: 065

REACTIONS (3)
  - CORONARY ARTERY DISEASE [None]
  - CORONARY ARTERY OCCLUSION [None]
  - MYOCARDIAL INFARCTION [None]
